FAERS Safety Report 12613654 (Version 1)
Quarter: 2016Q3

REPORT INFORMATION
  Report Type: Spontaneous
  Country: US (occurrence: None)
  Receive Date: 20160801
  Receipt Date: 20160801
  Transmission Date: 20161109
  Serious: Yes (Other)
  Sender: FDA-Public Use
  Company Number: None

PATIENT
  Age: 71 Year
  Sex: Female
  Weight: 90.72 kg

DRUGS (13)
  1. CLARITIN [Concomitant]
     Active Substance: LORATADINE
  2. VITAMIN C [Concomitant]
     Active Substance: ASCORBIC ACID
  3. FUROSEMIDE, 40 MG ROXANE LABS [Suspect]
     Active Substance: FUROSEMIDE
     Indication: JOINT SWELLING
     Dosage: 20 TABLET(S) IN THE MORNING TAKEN BY MOUTH
     Route: 048
     Dates: start: 20160721, end: 20160729
  4. FUROSEMIDE, 40 MG ROXANE LABS [Suspect]
     Active Substance: FUROSEMIDE
     Indication: PERIPHERAL SWELLING
     Dosage: 20 TABLET(S) IN THE MORNING TAKEN BY MOUTH
     Route: 048
     Dates: start: 20160721, end: 20160729
  5. VALIUM [Concomitant]
     Active Substance: DIAZEPAM
  6. ASPIRIN. [Concomitant]
     Active Substance: ASPIRIN
  7. PREMPRO [Concomitant]
     Active Substance: ESTROGENS, CONJUGATED\MEDROXYPROGESTERONE ACETATE
  8. ACIPHEX [Concomitant]
     Active Substance: RABEPRAZOLE SODIUM
  9. TAPIZOLE [Concomitant]
  10. VITAMIN E [Concomitant]
     Active Substance: .ALPHA.-TOCOPHEROL
  11. OSTEO-BIFLEX [Concomitant]
  12. CALCIUM/MAGNESIUM/ZINC [Concomitant]
  13. MULTI-VITAMINS [Concomitant]

REACTIONS (5)
  - Headache [None]
  - Rash [None]
  - Drug hypersensitivity [None]
  - Nausea [None]
  - Dizziness [None]

NARRATIVE: CASE EVENT DATE: 20160730
